FAERS Safety Report 10750597 (Version 1)
Quarter: 2015Q1

REPORT INFORMATION
  Report Type: Spontaneous
  Country: GB (occurrence: None)
  Receive Date: 20150107
  Receipt Date: 20150107
  Transmission Date: 20150721
  Serious: Yes (Other)
  Sender: FDA-Public Use
  Company Number: QR85378-01

PATIENT
  Sex: Male

DRUGS (1)
  1. GAMMAPLEX [Suspect]
     Active Substance: HUMAN IMMUNOGLOBULIN G
     Route: 042
     Dates: start: 20141117, end: 20141117

REACTIONS (7)
  - Pallor [None]
  - Malaise [None]
  - Heart rate decreased [None]
  - Disturbance in attention [None]
  - Oxygen saturation decreased [None]
  - Blood pressure decreased [None]
  - Chills [None]

NARRATIVE: CASE EVENT DATE: 20141117
